FAERS Safety Report 4365083-6 (Version None)
Quarter: 2004Q2

REPORT INFORMATION
  Report Type: 
  Country: None (occurrence: None)
  Receive Date: 20040521
  Receipt Date: 20040510
  Transmission Date: 20050107
  Serious: No
  Sender: FDA-Public Use
  Company Number: A01200402252

PATIENT
  Age: 17 Year
  Sex: Female

DRUGS (2)
  1. XATRAL - (ALFUZOSIN) - TABLET - 10 MG [Suspect]
     Dosage: 10 MG OD ORAL
     Route: 048
     Dates: start: 20040315, end: 20040420
  2. AKARIN (CITALOPRAM) [Concomitant]

REACTIONS (2)
  - ABORTION [None]
  - DRUG EXPOSURE DURING PREGNANCY [None]
